FAERS Safety Report 14637202 (Version 1)
Quarter: 2018Q1

REPORT INFORMATION
  Report Type: Spontaneous
  Country: US (occurrence: US)
  Receive Date: 20180314
  Receipt Date: 20180314
  Transmission Date: 20180509
  Serious: Yes (Death)
  Sender: FDA-Public Use
  Company Number: None

PATIENT
  Age: 24 Year
  Sex: Male
  Weight: 73.48 kg

DRUGS (3)
  1. VENLAFAXINE [Concomitant]
     Active Substance: VENLAFAXINE HYDROCHLORIDE
  2. MIRTAZAPINE. [Concomitant]
     Active Substance: MIRTAZAPINE
  3. KRATOM (MITRAGYNINE) [Suspect]
     Active Substance: MITRAGYNINE\HERBALS
     Indication: DRUG ABUSE

REACTIONS (3)
  - Toxicity to various agents [None]
  - Alcohol use [None]
  - Accidental death [None]

NARRATIVE: CASE EVENT DATE: 20140527
